FAERS Safety Report 20200776 (Version 1)
Quarter: 2021Q4

REPORT INFORMATION
  Report Type: Spontaneous
  Country: GB (occurrence: GB)
  Receive Date: 20211217
  Receipt Date: 20211217
  Transmission Date: 20220303
  Serious: Yes (Other)
  Sender: FDA-Public Use
  Company Number: None

PATIENT
  Age: 48 Year
  Sex: Female
  Weight: 89 kg

DRUGS (6)
  1. LEVOTHYROXINE [Suspect]
     Active Substance: LEVOTHYROXINE
     Indication: Hypothyroidism
     Dosage: 50MG
     Route: 048
     Dates: start: 20180918, end: 20211110
  2. CALCIUM MAGNESIUM CARBONATE [Concomitant]
     Active Substance: CALCIUM MAGNESIUM CARBONATE
     Indication: Ill-defined disorder
  3. CANDESARTAN [Concomitant]
     Active Substance: CANDESARTAN
     Indication: Ill-defined disorder
  4. CHOLECALCIFEROL [Concomitant]
     Active Substance: CHOLECALCIFEROL
     Indication: Ill-defined disorder
  5. FERROUS SULFATE [Concomitant]
     Active Substance: FERROUS SULFATE
     Indication: Ill-defined disorder
  6. HERBALS [Concomitant]
     Active Substance: HERBALS
     Indication: Ill-defined disorder

REACTIONS (7)
  - Adverse drug reaction [Recovering/Resolving]
  - Adverse drug reaction [Recovering/Resolving]
  - Anxiety [Recovering/Resolving]
  - Adverse drug reaction [Not Recovered/Not Resolved]
  - Adverse drug reaction [Recovering/Resolving]
  - Loss of libido [Recovering/Resolving]
  - Dyspnoea [Recovering/Resolving]

NARRATIVE: CASE EVENT DATE: 20200925
